FAERS Safety Report 15288419 (Version 3)
Quarter: 2019Q1

REPORT INFORMATION
  Report Type: Report from Study
  Country: US (occurrence: US)
  Receive Date: 20180817
  Receipt Date: 20190329
  Transmission Date: 20190417
  Serious: Yes (Other)
  Sender: FDA-Public Use
  Company Number: US-ROCHE-2169770

PATIENT
  Age: 27 Year
  Sex: Female
  Weight: 94.43 kg

DRUGS (5)
  1. FIORICET [Concomitant]
     Active Substance: ACETAMINOPHEN\BUTALBITAL\CAFFEINE
     Indication: HEADACHE
     Dosage: ONGOING YES
     Route: 065
  2. OCREVUS [Suspect]
     Active Substance: OCRELIZUMAB
     Indication: MULTIPLE SCLEROSIS
     Dosage: ONGOING-YES
     Route: 042
     Dates: start: 20180807
  3. NAPROXEN. [Concomitant]
     Active Substance: NAPROXEN
     Indication: PAIN
     Dosage: ONGOING YES
     Route: 065
  4. ACYCLOVIR. [Concomitant]
     Active Substance: ACYCLOVIR
     Indication: HERPES VIRUS INFECTION
     Dosage: ONGOING YES
     Route: 065
  5. AMITIZA [Concomitant]
     Active Substance: LUBIPROSTONE
     Indication: CONSTIPATION
     Dosage: ONGOING YES
     Route: 065
     Dates: start: 20190320

REACTIONS (11)
  - Dyspnoea [Unknown]
  - Pain in extremity [Not Recovered/Not Resolved]
  - Fatigue [Not Recovered/Not Resolved]
  - Bacterial vaginosis [Recovering/Resolving]
  - Nausea [Unknown]
  - Herpes virus infection [Not Recovered/Not Resolved]
  - Chest pain [Unknown]
  - Vaginal infection [Recovered/Resolved]
  - Pruritus [Recovered/Resolved]
  - Fatigue [Recovered/Resolved]
  - Sinus disorder [Unknown]

NARRATIVE: CASE EVENT DATE: 20180807
